FAERS Safety Report 15173130 (Version 1)
Quarter: 2018Q3

REPORT INFORMATION
  Report Type: Spontaneous
  Country: IT (occurrence: IT)
  Receive Date: 20180720
  Receipt Date: 20180720
  Transmission Date: 20181010
  Serious: Yes (Other)
  Sender: FDA-Public Use
  Company Number: IT-ASTRAZENECA-2018SE91028

PATIENT
  Sex: Male

DRUGS (11)
  1. BRILIQUE [Suspect]
     Active Substance: TICAGRELOR
     Route: 048
  2. TRIATEC [Concomitant]
     Dosage: 25 MG DIE
  3. BISOPROLOL [Concomitant]
     Active Substance: BISOPROLOL
     Dosage: 2.5MG DIE
  4. TORVAST [Concomitant]
     Active Substance: ATORVASTATIN
     Dosage: 80MG DIE
  5. BRILIQUE [Suspect]
     Active Substance: TICAGRELOR
     Route: 048
     Dates: start: 20180310
  6. NORVASC [Concomitant]
     Active Substance: AMLODIPINE BESYLATE
     Dosage: 5MG DIE
  7. BRILIQUE [Suspect]
     Active Substance: TICAGRELOR
     Route: 048
  8. ALLOPURINOL. [Concomitant]
     Active Substance: ALLOPURINOL
     Dosage: PER URICAEMIA
  9. TIROX [Concomitant]
     Dosage: 25 MG DIE
  10. PANTOPRAZOLE [Concomitant]
     Active Substance: PANTOPRAZOLE
     Dosage: 1 TABLET
  11. CARDIOASPIRIN [Concomitant]
     Active Substance: ASPIRIN
     Dosage: 100MG DIE

REACTIONS (1)
  - Sleep apnoea syndrome [Recovered/Resolved]
